FAERS Safety Report 14008745 (Version 1)
Quarter: 2017Q3

REPORT INFORMATION
  Report Type: Spontaneous
  Country: US (occurrence: US)
  Receive Date: 20170925
  Receipt Date: 20170925
  Transmission Date: 20171128
  Serious: Yes (Other)
  Sender: FDA-Public Use
  Company Number: US-PFIZER INC-2017407487

PATIENT
  Sex: Female
  Weight: 81.65 kg

DRUGS (1)
  1. SERTRALINE HCL [Suspect]
     Active Substance: SERTRALINE HYDROCHLORIDE
     Indication: PARKINSON^S DISEASE
     Dosage: TOOK 3-4 PILLS

REACTIONS (5)
  - Dyspnoea [Unknown]
  - Drug hypersensitivity [Unknown]
  - Swelling face [Unknown]
  - Apparent death [Unknown]
  - Throat tightness [Unknown]
